FAERS Safety Report 10888131 (Version 1)
Quarter: 2015Q1

REPORT INFORMATION
  Report Type: Spontaneous
  Country: US (occurrence: US)
  Receive Date: 20150304
  Receipt Date: 20150304
  Transmission Date: 20150721
  Serious: Yes (Hospitalization, Other)
  Sender: FDA-Public Use
  Company Number: US-AMGEN-USASP2013074445

PATIENT
  Age: 44 Year
  Sex: Female

DRUGS (1)
  1. ENBREL [Suspect]
     Active Substance: ETANERCEPT
     Indication: RHEUMATOID ARTHRITIS
     Dosage: 50 MG, QWK
     Route: 065
     Dates: start: 20130125

REACTIONS (12)
  - Erythema [Recovered/Resolved]
  - Nodule [Not Recovered/Not Resolved]
  - Feeling hot [Recovered/Resolved]
  - Pain in extremity [Recovered/Resolved]
  - Induration [Recovered/Resolved]
  - Ear infection [Not Recovered/Not Resolved]
  - Sinusitis [Not Recovered/Not Resolved]
  - Joint swelling [Not Recovered/Not Resolved]
  - Arthralgia [Not Recovered/Not Resolved]
  - Peripheral swelling [Recovered/Resolved]
  - Cellulitis [Recovered/Resolved]
  - Venomous sting [Recovered/Resolved]

NARRATIVE: CASE EVENT DATE: 201307
